FAERS Safety Report 20470413 (Version 4)
Quarter: 2023Q2

REPORT INFORMATION
  Report Type: Report from Study
  Country: KR (occurrence: KR)
  Receive Date: 20220214
  Receipt Date: 20230411
  Transmission Date: 20230722
  Serious: Yes (Other)
  Sender: FDA-Public Use
  Company Number: KR-TAKEDA-2022TUS008941

PATIENT
  Age: 59 Year
  Sex: Female
  Weight: 59 kg

DRUGS (20)
  1. IXAZOMIB [Suspect]
     Active Substance: IXAZOMIB
     Indication: Plasma cell myeloma
     Dosage: 4 MILLIGRAM
     Route: 065
     Dates: start: 20211123
  2. IXAZOMIB [Suspect]
     Active Substance: IXAZOMIB
     Dosage: 3 MILLIGRAM
     Route: 065
     Dates: start: 20220220
  3. DEXAMETHASONE [Suspect]
     Active Substance: DEXAMETHASONE
     Indication: Plasma cell myeloma
     Dosage: 20 MILLIGRAM
     Route: 065
     Dates: start: 20211123
  4. DEXAMETHASONE [Suspect]
     Active Substance: DEXAMETHASONE
     Dosage: 10 MILLIGRAM
     Route: 065
     Dates: start: 20220218
  5. DEXAMETHASONE [Suspect]
     Active Substance: DEXAMETHASONE
     Dosage: 20 MILLIGRAM
     Route: 065
     Dates: start: 20220317
  6. DEXAMETHASONE [Suspect]
     Active Substance: DEXAMETHASONE
     Dosage: 15 MILLIGRAM
     Route: 065
     Dates: start: 20220414
  7. LENALIDOMIDE [Suspect]
     Active Substance: LENALIDOMIDE
     Indication: Plasma cell myeloma
     Dosage: 25 MILLIGRAM
     Route: 065
     Dates: start: 20211123
  8. Vacrax [Concomitant]
     Indication: Infection prophylaxis
     Dosage: 400 MILLIGRAM
     Route: 048
     Dates: start: 20211123, end: 20220307
  9. ASPIRIN [Concomitant]
     Active Substance: ASPIRIN
     Indication: Prophylaxis
     Dosage: 100 MILLIGRAM
     Route: 048
     Dates: start: 20211123, end: 20220307
  10. MAGNESIUM HYDROXIDE [Concomitant]
     Active Substance: MAGNESIUM HYDROXIDE
     Indication: Constipation
     Dosage: 500 MILLIGRAM
     Route: 048
     Dates: start: 20211123, end: 20220117
  11. SILYMAN COMPLEX [Concomitant]
     Indication: Hepatic enzyme increased
     Dosage: 140 MILLIGRAM
     Route: 048
     Dates: start: 20211207, end: 20211220
  12. POTALAC [Concomitant]
     Indication: Constipation
     Dosage: 20 GRAM
     Route: 048
     Dates: start: 20211221, end: 20220207
  13. LEVOTHYROXINE SODIUM [Concomitant]
     Active Substance: LEVOTHYROXINE SODIUM
     Indication: Prophylaxis
     Dosage: 50 MICROGRAM
     Route: 048
     Dates: end: 20220307
  14. URSODIOL [Concomitant]
     Active Substance: URSODIOL
     Indication: Hepatic enzyme increased
     Dosage: 100 MILLIGRAM
     Route: 048
     Dates: start: 20211207, end: 20220117
  15. Vitaferol [Concomitant]
     Indication: Osteoporosis prophylaxis
     Dosage: UNK
     Route: 048
     Dates: start: 20211123, end: 20220307
  16. Vitaferol [Concomitant]
     Indication: Prophylaxis
  17. SULFAMETHOXAZOLE\TRIMETHOPRIM [Concomitant]
     Active Substance: SULFAMETHOXAZOLE\TRIMETHOPRIM
     Indication: Infection prophylaxis
     Dosage: 400 MILLIGRAM
     Route: 048
     Dates: start: 20211123, end: 20220117
  18. LEVOFLOXACIN [Concomitant]
     Active Substance: LEVOFLOXACIN
     Indication: Infection prophylaxis
     Dosage: 500 MILLIGRAM
     Route: 048
     Dates: start: 20211123, end: 20220117
  19. LAFUTIDINE [Concomitant]
     Active Substance: LAFUTIDINE
     Indication: Chronic gastritis
     Dosage: 10 MILLIGRAM
     Route: 048
     Dates: start: 20211221, end: 20211224
  20. DESOWEN [Concomitant]
     Active Substance: DESONIDE
     Indication: Prophylaxis
     Dosage: 40 MILLILITER
     Route: 061
     Dates: start: 20211221, end: 20211221

REACTIONS (1)
  - Angioedema [Recovered/Resolved]

NARRATIVE: CASE EVENT DATE: 20211222
